FAERS Safety Report 9462155 (Version 2)
Quarter: 2013Q3

REPORT INFORMATION
  Report Type: Spontaneous
  Country: US (occurrence: None)
  Receive Date: 20130813
  Receipt Date: 20130912
  Transmission Date: 20140515
  Serious: Yes (Other)
  Sender: FDA-Public Use
  Company Number: JPI-P-034281

PATIENT
  Age: 26 Year
  Sex: Male
  Weight: 144.2 kg

DRUGS (1)
  1. XYREM (500 MILLIGRAM/MILLILITERS, SOLUTION) (SODIUM OXYBATE) [Suspect]
     Indication: CATAPLEXY
     Dosage: 4.5GM (2.25GM, 2 IN 1 D) ORAL
     Route: 048
     Dates: start: 20110616, end: 2011

REACTIONS (4)
  - Weight decreased [None]
  - Cholecystectomy [None]
  - Sleep apnoea syndrome [None]
  - Hypersomnia [None]
